FAERS Safety Report 20718448 (Version 2)
Quarter: 2022Q2

REPORT INFORMATION
  Report Type: Spontaneous
  Country: US (occurrence: None)
  Receive Date: 20220418
  Receipt Date: 20220420
  Transmission Date: 20220721
  Serious: Yes (Other)
  Sender: FDA-Public Use
  Company Number: 2022A146156

PATIENT
  Age: 895 Month
  Sex: Male
  Weight: 102.1 kg

DRUGS (1)
  1. BRILINTA [Suspect]
     Active Substance: TICAGRELOR
     Indication: Acute myocardial infarction
     Route: 048
     Dates: start: 20220301, end: 20220328

REACTIONS (4)
  - Ventricular extrasystoles [Unknown]
  - Anaemia [Recovered/Resolved]
  - Asthenia [Recovering/Resolving]
  - Pallor [Unknown]

NARRATIVE: CASE EVENT DATE: 20220301
